FAERS Safety Report 5628912-1 (Version None)
Quarter: 2008Q1

REPORT INFORMATION
  Report Type: 
  Country: None (occurrence: None)
  Receive Date: 20080213
  Receipt Date: 20080128
  Transmission Date: 20080703
  Serious: Yes (Other)
  Sender: FDA-Public Use
  Company Number: 8029108

PATIENT
  Age: 33 Year
  Sex: Female
  Weight: 67.3 kg

DRUGS (1)
  1. KEPPRA [Suspect]
     Indication: CONVULSION
     Dosage: 1000 MG /D PO
     Route: 048
     Dates: start: 20070611, end: 20071220

REACTIONS (6)
  - ABORTION SPONTANEOUS [None]
  - DRUG EXPOSURE DURING PREGNANCY [None]
  - FOETAL GROWTH RETARDATION [None]
  - PREGNANCY [None]
  - PROGESTERONE DECREASED [None]
  - VAGINAL HAEMORRHAGE [None]
